FAERS Safety Report 5702953-8 (Version None)
Quarter: 2008Q2

REPORT INFORMATION
  Report Type: 
  Country: None (occurrence: None)
  Receive Date: 20080408
  Receipt Date: 20080326
  Transmission Date: 20081010
  Serious: Yes (Other)
  Sender: FDA-Public Use
  Company Number: 100#08#2008-01788

PATIENT
  Age: 72 Year
  Sex: Male

DRUGS (4)
  1. ENALAPRIL MALEATE [Suspect]
     Indication: DRUG USE FOR UNKNOWN INDICATION
  2. GLIPIZIDE [Suspect]
     Indication: TYPE 2 DIABETES MELLITUS
     Dosage: 5 MG/12 HOURS
  3. ALPHA-BLOCKERS (ALPHA BLOCKERS) [Concomitant]
  4. CALCIUM CHANNEL ANTAGONISTS (CALCIUM CHANNEL ANTAGONISTS) [Concomitant]

REACTIONS (3)
  - DIABETES MELLITUS [None]
  - DRUG INTERACTION [None]
  - PANCYTOPENIA [None]
